FAERS Safety Report 5440485-5 (Version None)
Quarter: 2007Q3

REPORT INFORMATION
  Report Type: 
  Country: None (occurrence: None)
  Receive Date: 20070831
  Receipt Date: 20070820
  Transmission Date: 20080115
  Serious: Yes (Other)
  Sender: FDA-Public Use
  Company Number: FR-ROCHE-500121

PATIENT
  Age: 27 Year
  Sex: Male

DRUGS (2)
  1. ISOTRETINOIN [Suspect]
     Indication: ACNE
     Route: 065
  2. UNSPECIFIED DRUG [Concomitant]
     Dosage: REPORTED AS MUSCLE RELAXANT.

REACTIONS (1)
  - CYTOLYTIC HEPATITIS [None]
